FAERS Safety Report 18255389 (Version 4)
Quarter: 2020Q4

REPORT INFORMATION
  Report Type: Report from Study
  Country: JP (occurrence: JP)
  Receive Date: 20200910
  Receipt Date: 20201007
  Transmission Date: 20210113
  Serious: Yes (Hospitalization)
  Sender: FDA-Public Use
  Company Number: JP-JNJFOC-A-CH2020-202160

PATIENT
  Age: 33 Year
  Sex: Female
  Weight: 63.5 kg

DRUGS (25)
  1. XYLOCAINE [Suspect]
     Active Substance: LIDOCAINE HYDROCHLORIDE
  2. NEXIUM [Concomitant]
     Active Substance: ESOMEPRAZOLE MAGNESIUM
     Indication: PROPHYLAXIS
     Dosage: 20 MG, QD
     Route: 048
     Dates: start: 20171120
  3. BEPOTASTINE BESILATE [Concomitant]
     Active Substance: BEPOTASTINE BESYLATE
  4. RUPAFIN [Concomitant]
     Active Substance: RUPATADINE FUMARATE
  5. POLARAMINE [Concomitant]
     Active Substance: DEXCHLORPHENIRAMINE MALEATE
  6. OXYGEN. [Concomitant]
     Active Substance: OXYGEN
     Route: 055
  7. OPSUMIT [Suspect]
     Active Substance: MACITENTAN
     Indication: PULMONARY ARTERIAL HYPERTENSION
     Dosage: 10 MG, QD
     Route: 048
     Dates: start: 20171122
  8. FUROSEMIDE. [Suspect]
     Active Substance: FUROSEMIDE
     Indication: RIGHT VENTRICULAR FAILURE
     Dosage: 20 MG, QD
     Route: 048
     Dates: start: 20171130
  9. HEPARINOID [Suspect]
     Active Substance: CHONDROITIN SULFATE (BOVINE)
  10. CEFAZOLIN SODIUM. [Concomitant]
     Active Substance: CEFAZOLIN SODIUM
     Indication: PROPHYLAXIS
     Dosage: 1 G, QD
     Route: 042
     Dates: start: 20171207, end: 20171213
  11. AMOXICILLIN TRIHYDRATE [Concomitant]
     Active Substance: AMOXICILLIN
  12. SULBACILLIN [Concomitant]
     Active Substance: AMPICILLIN SODIUM\SULBACTAM SODIUM
  13. UPTRAVI [Suspect]
     Active Substance: SELEXIPAG
     Indication: PULMONARY ARTERIAL HYPERTENSION
     Dosage: 0.2-1.6 MG BID
     Route: 048
     Dates: start: 20190130
  14. WARFARIN [Concomitant]
     Active Substance: WARFARIN
     Indication: THROMBOSIS PROPHYLAXIS
     Dosage: 2-4 MG/QD
     Route: 048
     Dates: start: 20171118, end: 20171205
  15. CALONAL [Concomitant]
     Active Substance: ACETAMINOPHEN
     Indication: CATHETER SITE PAIN
     Dosage: 300 MG, PRN
     Route: 048
     Dates: start: 20171208
  16. TALION OD [Concomitant]
     Active Substance: BEPOTASTINE BESYLATE
  17. EPOPROSTENOL ACT [Suspect]
     Active Substance: EPOPROSTENOL
     Indication: PULMONARY ARTERIAL HYPERTENSION
     Dosage: 0.2-61NG/KG/MIN
     Route: 042
     Dates: start: 20171207
  18. SPIRONOLACTONE. [Concomitant]
     Active Substance: SPIRONOLACTONE
  19. SAWACILLIN [Concomitant]
     Active Substance: AMOXICILLIN
  20. FUROSEMIDE. [Suspect]
     Active Substance: FUROSEMIDE
     Dosage: 20 MG, BID
     Route: 048
     Dates: start: 20171216
  21. ADCIRCA [Concomitant]
     Active Substance: TADALAFIL
     Indication: PULMONARY ARTERIAL HYPERTENSION
     Dosage: 40 MG, QD
     Route: 048
     Dates: start: 20171118
  22. DOBUPUM [Concomitant]
     Active Substance: DOBUTAMINE HYDROCHLORIDE
     Indication: LOW CARDIAC OUTPUT SYNDROME
     Dosage: 1 ML/HR, QD
     Route: 042
     Dates: start: 20171118, end: 20171213
  23. BANAN [Concomitant]
     Active Substance: CEFPODOXIME PROXETIL
  24. LOXOPROFEN [Concomitant]
     Active Substance: LOXOPROFEN
     Indication: CATHETER SITE PAIN
     Dosage: 60 MG, QD
     Route: 048
     Dates: start: 20171227
  25. SAXIZON [Concomitant]
     Active Substance: HYDROCORTISONE SODIUM SUCCINATE

REACTIONS (16)
  - Myringotomy [Unknown]
  - Platelet count decreased [Recovered/Resolved]
  - Drug eruption [Recovered/Resolved]
  - Hypokalaemia [Recovered/Resolved]
  - Pyrexia [Recovered/Resolved]
  - Pulmonary alveolar haemorrhage [Recovered/Resolved]
  - Catheter site pain [Recovered/Resolved]
  - Headache [Not Recovered/Not Resolved]
  - Anaemia [Recovered/Resolved]
  - Otitis media [Recovered/Resolved]
  - Hepatic function abnormal [Recovered/Resolved]
  - Tonsillitis [Recovered/Resolved]
  - Cough [Recovered/Resolved]
  - Diarrhoea [Recovered/Resolved]
  - Supraventricular tachycardia [Recovered/Resolved]
  - Flushing [Recovered/Resolved]

NARRATIVE: CASE EVENT DATE: 20171208
